FAERS Safety Report 5158455-3 (Version None)
Quarter: 2006Q4

REPORT INFORMATION
  Report Type: 
  Country: None (occurrence: None)
  Receive Date: 20061128
  Receipt Date: 20061116
  Transmission Date: 20070319
  Serious: Yes (Hospitalization)
  Sender: FDA-Public Use
  Company Number: PHHO2006DE19508

PATIENT
  Sex: Male

DRUGS (1)
  1. NEORAL [Suspect]
     Indication: LIVER TRANSPLANT
     Route: 048

REACTIONS (3)
  - ACUTE PSYCHOSIS [None]
  - AGITATION [None]
  - CONFUSIONAL STATE [None]
